FAERS Safety Report 5314592-1 (Version None)
Quarter: 2007Q2

REPORT INFORMATION
  Report Type: 
  Country: None (occurrence: None)
  Receive Date: 20070425
  Receipt Date: 20070413
  Transmission Date: 20071010
  Serious: Yes (Other)
  Sender: FDA-Public Use
  Company Number: 2005BI019856

PATIENT
  Age: 73 Year
  Sex: Male

DRUGS (13)
  1. AVONEX [Suspect]
     Indication: MULTIPLE SCLEROSIS
     Dosage: 30 UG; QW; IM
     Route: 030
     Dates: start: 20030521, end: 20030801
  2. AVONEX [Suspect]
     Indication: MULTIPLE SCLEROSIS
     Dosage: 30 UG; QW; IM
     Route: 030
     Dates: start: 20030801, end: 20070301
  3. ATENOLOL [Concomitant]
  4. FLUOXETINE [Concomitant]
  5. LOTREL [Concomitant]
  6. UROXATRAL [Concomitant]
  7. DOXYCYCLINE [Concomitant]
  8. FINACEA [Concomitant]
  9. NASONEX [Concomitant]
  10. LIPITOR [Concomitant]
  11. ASPIRIN [Concomitant]
  12. VIAGRA [Concomitant]
  13. CHLORTHALIDONE [Concomitant]

REACTIONS (1)
  - KAPOSI'S SARCOMA [None]
